FAERS Safety Report 9029373 (Version 2)
Quarter: 2013Q1

REPORT INFORMATION
  Report Type: Spontaneous
  Country: US (occurrence: US)
  Receive Date: 20130125
  Receipt Date: 20130319
  Transmission Date: 20140127
  Serious: Yes (Other)
  Sender: FDA-Public Use
  Company Number: US-JNJFOC-20121115098

PATIENT
  Age: 64 Year
  Sex: Male

DRUGS (12)
  1. XARELTO [Suspect]
     Indication: DEEP VEIN THROMBOSIS
     Dosage: 21 DAYS
     Route: 048
     Dates: start: 20121127
  2. XARELTO [Suspect]
     Indication: DEEP VEIN THROMBOSIS
     Route: 048
     Dates: start: 20121129, end: 20130103
  3. XARELTO [Suspect]
     Indication: EMBOLISM VENOUS
     Dosage: 21 DAYS
     Route: 048
     Dates: start: 20121127
  4. XARELTO [Suspect]
     Indication: EMBOLISM VENOUS
     Route: 048
     Dates: start: 20121129, end: 20130103
  5. UNSPECIFIED GENERIC DRUG [Concomitant]
     Route: 065
  6. FISH OIL [Concomitant]
     Indication: CARDIAC DISORDER
     Route: 065
  7. OMEPRAZOLE [Concomitant]
     Indication: PRODUCT USED FOR UNKNOWN INDICATION
     Route: 065
  8. PRILOSEC [Concomitant]
     Indication: GASTROOESOPHAGEAL REFLUX DISEASE
     Route: 048
  9. CO-Q10 [Concomitant]
     Route: 048
  10. MOBIC [Concomitant]
     Indication: PAIN
     Route: 065
  11. ASA [Concomitant]
     Indication: CARDIOVASCULAR EVENT PROPHYLAXIS
     Route: 065
  12. VIT-D3 [Concomitant]
     Route: 048

REACTIONS (2)
  - Thrombosis [Unknown]
  - Heart rate irregular [Recovered/Resolved]
